FAERS Safety Report 4928651-6 (Version None)
Quarter: 2006Q1

REPORT INFORMATION
  Report Type: 
  Country: None (occurrence: None)
  Receive Date: 20060227
  Receipt Date: 20060227
  Transmission Date: 20060701
  Serious: Yes (Life-Threatening, Hospitalization)
  Sender: FDA-Public Use
  Company Number: None

PATIENT
  Age: 48 Year
  Sex: Male
  Weight: 79.3795 kg

DRUGS (3)
  1. PEGASYS [Suspect]
     Indication: HEPATITIS C
     Dosage: ONCE PER WEEK SQ
     Route: 058
     Dates: start: 20051001, end: 20051231
  2. COPEGUS [Suspect]
     Indication: HEPATITIS C
     Dosage: 3 TABLETS 2X DAILY  PO
     Route: 048
     Dates: start: 20051001, end: 20051231
  3. PROCRIT [Concomitant]

REACTIONS (4)
  - HALLUCINATION, AUDITORY [None]
  - PARANOIA [None]
  - PSYCHOTIC DISORDER [None]
  - SUICIDAL IDEATION [None]
